FAERS Safety Report 12568251 (Version 1)
Quarter: 2016Q3

REPORT INFORMATION
  Report Type: Spontaneous
  Country: GB (occurrence: GB)
  Receive Date: 20160718
  Receipt Date: 20160718
  Transmission Date: 20161109
  Serious: Yes (Life-Threatening, Hospitalization, Disabling, Other)
  Sender: FDA-Public Use
  Company Number: GB-ABBVIE-16P-167-1679150-00

PATIENT
  Age: 60 Year
  Sex: Male

DRUGS (2)
  1. SODIUM VALPROATE [Suspect]
     Active Substance: VALPROATE SODIUM
     Indication: PRODUCT USED FOR UNKNOWN INDICATION
     Route: 065
  2. DEPAKOTE [Suspect]
     Active Substance: DIVALPROEX SODIUM
     Indication: BIPOLAR DISORDER
     Route: 048
     Dates: start: 20070401, end: 20140401

REACTIONS (3)
  - Plasma cell myeloma [Not Recovered/Not Resolved]
  - Prostate cancer [Recovered/Resolved with Sequelae]
  - Drug prescribing error [Unknown]

NARRATIVE: CASE EVENT DATE: 20130913
